FAERS Safety Report 8816730 (Version 1)
Quarter: 2012Q4

REPORT INFORMATION
  Report Type: Spontaneous
  Country: US (occurrence: None)
  Receive Date: 20121001
  Receipt Date: 20121001
  Transmission Date: 20130627
  Serious: Yes (Hospitalization, Other)
  Sender: FDA-Public Use
  Company Number: 2012P1059318

PATIENT
  Age: 59 Year
  Sex: Female

DRUGS (6)
  1. PEPCID [Suspect]
     Indication: GASTRIC DISORDER
     Route: 048
     Dates: end: 20120727
  2. CAPTOPRIL [Suspect]
  3. NORVASC [Suspect]
  4. PLAVIX [Concomitant]
  5. METFORMIN [Concomitant]
  6. ASPIRIN [Concomitant]

REACTIONS (4)
  - Dyspepsia [None]
  - Dyspepsia [None]
  - Coronary artery occlusion [None]
  - Drug ineffective [None]
